FAERS Safety Report 16725192 (Version 2)
Quarter: 2021Q1

REPORT INFORMATION
  Report Type: Report from Study
  Country: AU (occurrence: AU)
  Receive Date: 20190821
  Receipt Date: 20210223
  Transmission Date: 20210419
  Serious: Yes (Hospitalization, Other)
  Sender: FDA-Public Use
  Company Number: AU-BRISTOL-MYERS SQUIBB COMPANY-BMS-2019-060309

PATIENT
  Age: 55 Year
  Sex: Male

DRUGS (2)
  1. NIVOLUMAB [Suspect]
     Active Substance: NIVOLUMAB
     Indication: MALIGNANT MELANOMA
     Dosage: 294 MILLIGRAM, Q3WK
     Route: 042
     Dates: start: 20190521, end: 20190611
  2. IPILIMUMAB [Suspect]
     Active Substance: IPILIMUMAB
     Indication: MALIGNANT MELANOMA
     Dosage: 98 MILLIGRAM, Q3WK
     Route: 042
     Dates: start: 20190521, end: 20190611

REACTIONS (4)
  - Myelitis transverse [Recovered/Resolved with Sequelae]
  - Intestinal perforation [Recovering/Resolving]
  - Cellulitis [Not Recovered/Not Resolved]
  - Immune-mediated neuropathy [Not Recovered/Not Resolved]

NARRATIVE: CASE EVENT DATE: 201906
